FAERS Safety Report 21839431 (Version 7)
Quarter: 2023Q4

REPORT INFORMATION
  Report Type: Spontaneous
  Country: IT (occurrence: IT)
  Receive Date: 20230109
  Receipt Date: 20231013
  Transmission Date: 20240109
  Serious: Yes (Hospitalization)
  Sender: FDA-Public Use
  Company Number: IT-ROCHE-3246339

PATIENT
  Age: 45 Year
  Sex: Female
  Weight: 65 kg

DRUGS (32)
  1. TUKYSA [Suspect]
     Active Substance: TUCATINIB
     Indication: HER2 positive breast cancer
     Dosage: FREQUENCY 4 TIMES
     Dates: start: 20221121, end: 20221212
  2. TRASTUZUMAB [Suspect]
     Active Substance: TRASTUZUMAB
     Indication: HER2 positive breast cancer
     Dosage: UNK UNK, Q3WEEKS
     Route: 042
     Dates: start: 20170418, end: 20170418
  3. TRASTUZUMAB [Suspect]
     Active Substance: TRASTUZUMAB
     Dosage: 350 MILLIGRAM, Q3WEEKS
     Route: 042
     Dates: start: 20211020, end: 20220316
  4. TRASTUZUMAB [Suspect]
     Active Substance: TRASTUZUMAB
     Dosage: 6 MG, Q3WEEKS
     Route: 042
     Dates: start: 20170509, end: 20200803
  5. TRASTUZUMAB [Suspect]
     Active Substance: TRASTUZUMAB
     Dosage: 600 MILLIGRAM, Q3WEEKS
     Route: 058
     Dates: start: 20230109
  6. TRASTUZUMAB [Suspect]
     Active Substance: TRASTUZUMAB
     Dosage: 198 MILLIGRAM, Q3WEEKS
     Route: 042
     Dates: start: 20220316, end: 20221121
  7. TRASTUZUMAB [Suspect]
     Active Substance: TRASTUZUMAB
     Dosage: 490 MG/KG, Q3WEEKS
     Route: 042
     Dates: start: 20221121, end: 20230109
  8. CAPECITABINE [Suspect]
     Active Substance: CAPECITABINE
     Indication: HER2 positive breast cancer
     Dosage: FREQUNCY:4 TIMES
     Route: 048
     Dates: start: 20221121, end: 20221212
  9. CAPECITABINE [Suspect]
     Active Substance: CAPECITABINE
     Dosage: 500 MILLIGRAM, QD
     Route: 048
     Dates: start: 20221121, end: 20221212
  10. PERTUZUMAB [Suspect]
     Active Substance: PERTUZUMAB
     Indication: HER2 positive breast cancer
     Dosage: 420 MG, Q3WEEKS
     Route: 042
     Dates: start: 20170509, end: 20200803
  11. PERTUZUMAB [Suspect]
     Active Substance: PERTUZUMAB
     Dosage: INTRAVENOUS (NOT OTHERWISE SPECIFIED), FREQYENCY:EVERY THREE WEEK,MOST RECENT DOSE PRIOR TO THE EVEN
     Route: 042
     Dates: start: 20170418, end: 20170418
  12. EXEMESTANE [Suspect]
     Active Substance: EXEMESTANE
     Indication: HER2 positive breast cancer
     Dosage: MOST RECENT DOSE PRIOR TO AE 03/AUG/2020
     Dates: start: 20171019, end: 20200803
  13. LEUPROLIDE ACETATE [Suspect]
     Active Substance: LEUPROLIDE ACETATE
     Indication: Product used for unknown indication
     Dosage: 3.75 MILLIGRAM, MONTHLY
     Route: 058
     Dates: start: 20171019
  14. DOCETAXEL [Suspect]
     Active Substance: DOCETAXEL
     Indication: HER2 positive breast cancer
     Dosage: FREQUNCY: EVERY THREE WEEK,INTRAVENOUS (NOT OTHERWISE SPECIFIED), MOST RECENT DOSE PRIOR TO THE EVEN
     Route: 042
     Dates: start: 20170418, end: 20170418
  15. DOCETAXEL [Suspect]
     Active Substance: DOCETAXEL
     Dosage: 75 MG/M2, Q3WEEKS
     Route: 042
     Dates: start: 20170509, end: 20170928
  16. ADO-TRASTUZUMAB EMTANSINE [Suspect]
     Active Substance: ADO-TRASTUZUMAB EMTANSINE
     Indication: HER2 positive breast cancer
     Dosage: UNK UNK, Q3WEEKS
     Route: 042
     Dates: start: 20200803, end: 20210927
  17. ADO-TRASTUZUMAB EMTANSINE [Suspect]
     Active Substance: ADO-TRASTUZUMAB EMTANSINE
     Dosage: INTRAVENOUS (NOT OTHERWISE SPECIFIED) ,FRQUENCY:EVERY THREE WEEK,MOST RECENT DOSE PRIOR TO THE EVENT
     Route: 042
     Dates: start: 20200803, end: 20210927
  18. ENANTONE LP [Concomitant]
     Active Substance: LEUPROLIDE ACETATE
     Indication: Product used for unknown indication
     Dosage: ONGOING = CHECKED
     Route: 058
     Dates: start: 20171018, end: 20221212
  19. FUROSEMIDE [Concomitant]
     Active Substance: FUROSEMIDE
     Indication: Product used for unknown indication
     Dosage: 12.5 MILLIGRAM, QD
     Route: 048
     Dates: start: 20170525, end: 20170716
  20. FUROSEMIDE [Concomitant]
     Active Substance: FUROSEMIDE
     Dosage: 25 MILLIGRAM, QDCUMULATIVE DOSE : 787.5 MG
     Route: 048
     Dates: start: 20170414, end: 20170418
  21. FUROSEMIDE [Concomitant]
     Active Substance: FUROSEMIDE
     Dosage: ONGOING = CHECKED
     Route: 065
     Dates: start: 20221012
  22. DEXAMETHASONE SODIUM PHOSPHATE [Concomitant]
     Active Substance: DEXAMETHASONE SODIUM PHOSPHATE
     Indication: HER2 positive breast cancer
     Dosage: ONGOING = CHECKED
     Route: 048
     Dates: start: 20220921, end: 20221222
  23. DEXAMETHASONE SODIUM PHOSPHATE [Concomitant]
     Active Substance: DEXAMETHASONE SODIUM PHOSPHATE
     Dosage: ONGOING = CHECKED
     Route: 048
     Dates: start: 20220727, end: 20221222
  24. LEVETIRACETAM [Concomitant]
     Active Substance: LEVETIRACETAM
     Indication: Product used for unknown indication
     Dosage: ONGOING = CHECKED
     Route: 048
     Dates: start: 20210614
  25. CYANOCOBALAMIN\PYRIDOXINE\THIAMINE [Concomitant]
     Active Substance: CYANOCOBALAMIN\PYRIDOXINE\THIAMINE
     Indication: Product used for unknown indication
     Dosage: ONGOING = CHECKED
     Route: 048
     Dates: start: 20220622
  26. LANSOPRAZOLE [Concomitant]
     Active Substance: LANSOPRAZOLE
     Indication: Product used for unknown indication
     Dosage: ONGOING = CHECKED
     Route: 048
     Dates: start: 20201005
  27. TIOBEC [THIOCTIC ACID] [Concomitant]
     Indication: Product used for unknown indication
     Dosage: ONGOING = CHECKED
     Route: 048
     Dates: start: 20220622, end: 20221212
  28. MOVICOL [Concomitant]
     Active Substance: POLYETHYLENE GLYCOL 3350\POTASSIUM CHLORIDE\SODIUM BICARBONATE\SODIUM CHLORIDE
     Indication: Product used for unknown indication
     Dosage: ONGOING = CHECKED
     Route: 065
     Dates: start: 20220413
  29. FOLIC ACID [Concomitant]
     Active Substance: FOLIC ACID
     Indication: Product used for unknown indication
     Dosage: ONGOING = CHECKED
     Route: 048
     Dates: start: 20220622
  30. ALDACTONE [Concomitant]
     Active Substance: SPIRONOLACTONE
     Indication: Product used for unknown indication
     Dosage: ONGOING = CHECKED
     Route: 048
     Dates: start: 20221012, end: 20221222
  31. OXYCODONE HYDROCHLORIDE [Concomitant]
     Active Substance: OXYCODONE HYDROCHLORIDE
     Indication: Product used for unknown indication
     Dosage: ONGOING = CHECKED
     Route: 048
     Dates: start: 20221109
  32. ARIXTRA [Concomitant]
     Active Substance: FONDAPARINUX SODIUM
     Indication: Deep vein thrombosis
     Dosage: ONGOING = CHECKED
     Route: 048
     Dates: start: 20221111, end: 20221212

REACTIONS (1)
  - Neurological decompensation [Not Recovered/Not Resolved]

NARRATIVE: CASE EVENT DATE: 20221212
